FAERS Safety Report 4885739-6 (Version None)
Quarter: 2006Q1

REPORT INFORMATION
  Report Type: 
  Country: None (occurrence: None)
  Receive Date: 20060117
  Receipt Date: 20060103
  Transmission Date: 20060701
  Serious: Yes (Other)
  Sender: FDA-Public Use
  Company Number: 2005168026

PATIENT
  Sex: Female

DRUGS (3)
  1. CABERGOLINE [Suspect]
     Indication: PARKINSON'S DISEASE
     Dosage: 1 MG (DAILY)
     Dates: start: 20041001, end: 20050201
  2. CABERGOLINE [Suspect]
     Indication: PARKINSON'S DISEASE
     Dosage: 1 MG (DAILY)
     Dates: start: 20050201
  3. SINEMET [Concomitant]

REACTIONS (3)
  - ABDOMINAL PAIN UPPER [None]
  - CROHN'S DISEASE [None]
  - DIARRHOEA [None]
